FAERS Safety Report 6522011-2 (Version None)
Quarter: 2009Q4

REPORT INFORMATION
  Report Type: 
  Country: None (occurrence: None)
  Receive Date: 20091230
  Receipt Date: 20091223
  Transmission Date: 20100525
  Serious: Yes (Other)
  Sender: FDA-Public Use
  Company Number: DE-RB-026623-09

PATIENT
  Age: 56 Year
  Sex: Male

DRUGS (2)
  1. SUBOXONE [Suspect]
     Route: 065
     Dates: start: 20091201
  2. ROHYPNOL [Concomitant]
     Indication: SLEEP DISORDER
     Dosage: DOSING DETAILS UNKNOWN
     Route: 065
     Dates: start: 20030101

REACTIONS (6)
  - ABDOMINAL PAIN [None]
  - DIARRHOEA [None]
  - DYSPEPSIA [None]
  - HALLUCINATION, AUDITORY [None]
  - SLEEP DISORDER [None]
  - VOMITING [None]
